FAERS Safety Report 6216050-9 (Version None)
Quarter: 2009Q2

REPORT INFORMATION
  Report Type: 
  Country: None (occurrence: None)
  Receive Date: 20090605
  Receipt Date: 20090603
  Transmission Date: 20091009
  Serious: Yes (Hospitalization)
  Sender: FDA-Public Use
  Company Number: US-BRISTOL-MYERS SQUIBB COMPANY-14648448

PATIENT
  Age: 63 Year
  Sex: Female
  Weight: 93 kg

DRUGS (3)
  1. ERBITUX [Suspect]
     Indication: SQUAMOUS CELL CARCINOMA OF THE CERVIX
     Dosage: 400 MG/M2 INITIAL LOADING DOSE 1 WEEK,THEN 250 MG/M2 2X5 WEEKS FIRST COURSE START ON:06-APR-2009
     Dates: start: 20090511
  2. CISPLATIN [Suspect]
     Indication: SQUAMOUS CELL CARCINOMA OF THE CERVIX
     Dosage: 30 MG/M2 WEEKX6 WEEK FIRST COURCE START ON :06-APR-2009
     Dates: start: 20090511
  3. BRACHYTHERAPY [Suspect]
     Indication: SQUAMOUS CELL CARCINOMA OF THE CERVIX
     Dosage: 1 DF=4140 CGY;NO.OF FRACTIONS=29;NO OF ELAPSED DAYS:23; FIRST COURSE STARTED ON 06-APR-2009
     Dates: start: 20090506, end: 20090506

REACTIONS (1)
  - ANAEMIA [None]
